FAERS Safety Report 7313825-X (Version None)
Quarter: 2011Q1

REPORT INFORMATION
  Report Type: 
  Country: None (occurrence: None)
  Receive Date: 20110225
  Receipt Date: 20110218
  Transmission Date: 20110831
  Serious: Yes (Other)
  Sender: FDA-Public Use
  Company Number: US-AMGEN-USASP2011009756

PATIENT
  Age: 63 Year
  Sex: Female

DRUGS (1)
  1. ENBREL [Suspect]
     Indication: RHEUMATOID ARTHRITIS
     Dosage: 50 MG, QWK
     Dates: start: 20061020, end: 20100101

REACTIONS (5)
  - WRIST SURGERY [None]
  - STAPHYLOCOCCAL INFECTION [None]
  - INCISION SITE INFECTION [None]
  - RHEUMATOID ARTHRITIS [None]
  - INJECTION SITE PAIN [None]
